FAERS Safety Report 14522323 (Version 1)
Quarter: 2018Q1

REPORT INFORMATION
  Report Type: Report from Study
  Country: US (occurrence: US)
  Receive Date: 20180212
  Receipt Date: 20180212
  Transmission Date: 20180509
  Serious: No
  Sender: FDA-Public Use
  Company Number: US-AMAG PHARMACEUTICALS, INC.-AMAG201701524

PATIENT

DRUGS (1)
  1. MAKENA [Suspect]
     Active Substance: HYDROXYPROGESTERONE CAPROATE
     Indication: PREMATURE DELIVERY
     Dosage: UNK
     Route: 065
     Dates: start: 201704

REACTIONS (4)
  - Injection site pruritus [Unknown]
  - Injection site scab [Unknown]
  - Injection site mass [Unknown]
  - Pain in extremity [Unknown]

NARRATIVE: CASE EVENT DATE: 201704
